FAERS Safety Report 7350151-7 (Version None)
Quarter: 2011Q1

REPORT INFORMATION
  Report Type: 
  Country: None (occurrence: None)
  Receive Date: 20110314
  Receipt Date: 20110311
  Transmission Date: 20110831
  Serious: Yes (Other)
  Sender: FDA-Public Use
  Company Number: B0693723A

PATIENT
  Age: 87 Year
  Sex: Male
  Weight: 80 kg

DRUGS (8)
  1. ACETAMINOPHEN [Concomitant]
     Dosage: 500MG SIX TIMES PER DAY
     Route: 048
     Dates: start: 20091201
  2. FRAXIPARINE [Suspect]
     Indication: THROMBOSIS PROPHYLAXIS
     Dosage: 3800IUAX PER DAY
     Route: 065
     Dates: start: 20091231, end: 20100209
  3. ARIXTRA [Suspect]
     Indication: THROMBOSIS PROPHYLAXIS
     Dosage: 2.5MG PER DAY
     Route: 058
     Dates: start: 20100209, end: 20100221
  4. AUGMENTIN [Suspect]
     Indication: INFECTION
     Dosage: 1UNIT THREE TIMES PER DAY
     Route: 048
     Dates: start: 20100114, end: 20100121
  5. AMLOR [Concomitant]
     Dosage: 5MG PER DAY
     Route: 048
  6. AMAREL [Suspect]
     Dosage: 2MG TWICE PER DAY
     Route: 048
     Dates: end: 20100219
  7. DEBRIDAT [Concomitant]
     Dosage: 1UNIT THREE TIMES PER DAY
     Route: 048
  8. LANTUS [Concomitant]
     Route: 058

REACTIONS (1)
  - CHOLESTASIS [None]
